FAERS Safety Report 11240057 (Version 1)
Quarter: 2015Q3

REPORT INFORMATION
  Report Type: Spontaneous
  Country: US (occurrence: None)
  Receive Date: 20150701
  Receipt Date: 20150701
  Transmission Date: 20151125
  Serious: Yes (Hospitalization, Other)
  Sender: FDA-Public Use
  Company Number: None

PATIENT
  Age: 78 Year
  Sex: Female

DRUGS (8)
  1. TOL + ERODINE [Concomitant]
  2. LISINOPRIL. [Concomitant]
     Active Substance: LISINOPRIL
  3. DIAZEPAM. [Concomitant]
     Active Substance: DIAZEPAM
  4. METRONIDAZOLE. [Suspect]
     Active Substance: METRONIDAZOLE
     Indication: ENDODONTIC PROCEDURE
     Dosage: 500 MG. ?28^1 EVERY 6/HS?MOUTH
     Route: 048
     Dates: start: 20150519
  5. METRONIDAZOLE. [Suspect]
     Active Substance: METRONIDAZOLE
     Indication: INFECTION
     Dosage: 500 MG. ?28^1 EVERY 6/HS?MOUTH
     Route: 048
     Dates: start: 20150519
  6. SIMVASTAN [Concomitant]
  7. IRON [Concomitant]
     Active Substance: IRON
  8. ROPINROLE [Concomitant]

REACTIONS (2)
  - Jaw disorder [None]
  - Swelling face [None]

NARRATIVE: CASE EVENT DATE: 20150518
